FAERS Safety Report 20570684 (Version 1)
Quarter: 2022Q1

REPORT INFORMATION
  Report Type: Spontaneous
  Country: US (occurrence: US)
  Receive Date: 20220309
  Receipt Date: 20220309
  Transmission Date: 20220424
  Serious: Yes (Other)
  Sender: FDA-Public Use
  Company Number: US-CELLTRION INC.-2022US002661

PATIENT

DRUGS (2)
  1. TRUXIMA [Suspect]
     Active Substance: RITUXIMAB-ABBS
     Indication: Encephalitis autoimmune
     Dosage: 1000 MG, DAY 1 AND 15 Q 180 DAYS
     Dates: start: 20211029
  2. TRUXIMA [Suspect]
     Active Substance: RITUXIMAB-ABBS
     Indication: Acute disseminated encephalomyelitis
     Dosage: 1000 MG, DAY 1 AND 15 Q 180 DAYS
     Dates: start: 20211212

REACTIONS (3)
  - Acute disseminated encephalomyelitis [Unknown]
  - Encephalitis autoimmune [Unknown]
  - Off label use [Unknown]
